FAERS Safety Report 7268688-8 (Version None)
Quarter: 2011Q1

REPORT INFORMATION
  Report Type: 
  Country: None (occurrence: None)
  Receive Date: 20110121
  Receipt Date: 20110112
  Transmission Date: 20110831
  Serious: Yes (Hospitalization)
  Sender: FDA-Public Use
  Company Number: 2011SP001704

PATIENT
  Age: 20 Year
  Sex: Female

DRUGS (1)
  1. NUVARING [Suspect]
     Indication: PRODUCT USED FOR UNKNOWN INDICATION
     Dates: start: 20100601

REACTIONS (6)
  - RASH GENERALISED [None]
  - URTICARIA [None]
  - ABDOMINAL PAIN [None]
  - WEIGHT DECREASED [None]
  - LATEX ALLERGY [None]
  - DIARRHOEA [None]
